FAERS Safety Report 9956070 (Version 1)
Quarter: 2014Q1

REPORT INFORMATION
  Report Type: Spontaneous
  Country: US (occurrence: US)
  Receive Date: 20140304
  Receipt Date: 20140304
  Transmission Date: 20141002
  Serious: No
  Sender: FDA-Public Use
  Company Number: US-ABBVIE-13P-163-1090657-00

PATIENT
  Sex: 0

DRUGS (2)
  1. HUMIRA [Suspect]
     Indication: PSORIATIC ARTHROPATHY
  2. STELARA [Suspect]
     Indication: PSORIATIC ARTHROPATHY
     Dates: start: 201005

REACTIONS (9)
  - Fatigue [Unknown]
  - Drug ineffective [Unknown]
  - Skin irritation [Unknown]
  - Pain [Unknown]
  - Influenza like illness [Unknown]
  - Headache [Unknown]
  - Eosinophil count increased [Unknown]
  - Psoriatic arthropathy [Unknown]
  - Chapped lips [Unknown]
